FAERS Safety Report 23795852 (Version 2)
Quarter: 2024Q2

REPORT INFORMATION
  Report Type: Report from Study
  Country: AT (occurrence: AT)
  Receive Date: 20240429
  Receipt Date: 20240502
  Transmission Date: 20240716
  Serious: No
  Sender: FDA-Public Use
  Company Number: AT-SANDOZ-SDZ2024AT043351

PATIENT
  Sex: Male

DRUGS (1)
  1. OMNITROPE [Suspect]
     Active Substance: SOMATROPIN
     Indication: Growth hormone deficiency
     Dosage: 1.4 MG
     Route: 058
     Dates: start: 20231227

REACTIONS (2)
  - Drug dose omission by device [Unknown]
  - Device issue [Unknown]
